FAERS Safety Report 15082394 (Version 1)
Quarter: 2018Q2

REPORT INFORMATION
  Report Type: Report from Study
  Country: GB (occurrence: GB)
  Receive Date: 20180628
  Receipt Date: 20180628
  Transmission Date: 20180711
  Serious: Yes (Hospitalization, Other)
  Sender: FDA-Public Use
  Company Number: GB-PFIZER INC-2018255875

PATIENT
  Age: 4 Year
  Sex: Female
  Weight: 17.4 kg

DRUGS (73)
  1. TAZOCIN [Suspect]
     Active Substance: PIPERACILLIN SODIUM\TAZOBACTAM SODIUM
     Indication: ANTIBIOTIC THERAPY
     Dosage: 1575 MG, 1X/DAY
     Route: 042
     Dates: start: 20180123, end: 20180126
  2. FILGRASTIM [Concomitant]
     Active Substance: FILGRASTIM
     Indication: COLONY STIMULATING FACTOR THERAPY
     Dosage: 84 UG, 1X/DAY
     Route: 042
     Dates: start: 20171213, end: 20171214
  3. IFOSFAMIDE. [Concomitant]
     Active Substance: IFOSFAMIDE
     Dosage: 2100 MG, 1X/DAY
     Route: 042
     Dates: end: 20180118
  4. RITUXIMAB. [Concomitant]
     Active Substance: RITUXIMAB
     Dosage: 270 MG, 1X/DAY
     Route: 042
     Dates: end: 20180118
  5. MOVICOL [Concomitant]
     Active Substance: POLYETHYLENE GLYCOL 3350\POTASSIUM CHLORIDE\SODIUM BICARBONATE\SODIUM CHLORIDE
     Dosage: 4 DF, 1X/DAY (SACHET)
     Route: 048
     Dates: start: 20171230, end: 20171231
  6. MOVICOL [Concomitant]
     Active Substance: POLYETHYLENE GLYCOL 3350\POTASSIUM CHLORIDE\SODIUM BICARBONATE\SODIUM CHLORIDE
     Dosage: UNK (2 SACHETS)
     Route: 048
     Dates: start: 20180109
  7. MAGNESIUM [Concomitant]
     Active Substance: MAGNESIUM
     Indication: NUTRITIONAL SUPPLEMENTATION
     Dosage: 12 MMOL, 1X/DAY
     Route: 048
     Dates: start: 20180207, end: 20180219
  8. CYTARABINE. [Concomitant]
     Active Substance: CYTARABINE
     Dosage: 1400 MG, 1X/DAY
     Route: 042
     Dates: start: 20180302, end: 20180306
  9. CEFIXIME. [Concomitant]
     Active Substance: CEFIXIME
     Indication: PROPHYLAXIS
     Dosage: 140 MG, 1X/DAY
     Route: 048
     Dates: start: 20180112, end: 20180129
  10. ALLOPURINOL. [Concomitant]
     Active Substance: ALLOPURINOL
     Indication: HYPERURICAEMIA
     Dosage: 216 MG, 1X/DAY
     Route: 048
     Dates: start: 20171211, end: 20171219
  11. IFOSFAMIDE. [Concomitant]
     Active Substance: IFOSFAMIDE
     Dosage: 2100 MG, 1X/DAY
     Route: 042
     Dates: start: 20180110, end: 20180112
  12. ETOPOSIDE. [Concomitant]
     Active Substance: ETOPOSIDE
     Dosage: 70 MG, 1X/DAY
     Route: 042
     Dates: end: 20180118
  13. MEROPENEM. [Concomitant]
     Active Substance: MEROPENEM
     Indication: ANTIBIOTIC THERAPY
     Dosage: 1035 MG, 1X/DAY
     Route: 042
     Dates: start: 20171205, end: 20171212
  14. NESINA [Concomitant]
     Active Substance: ALOGLIPTIN BENZOATE
     Dosage: 2150 MG, 1X/DAY
     Route: 042
     Dates: start: 20180110
  15. ONDANSETRON [Concomitant]
     Active Substance: ONDANSETRON
     Indication: NAUSEA
     Dosage: 10.8MG ONCE DAILY (1 SACHET)
     Route: 042
     Dates: start: 20171206, end: 20171221
  16. RITUXIMAB. [Concomitant]
     Active Substance: RITUXIMAB
     Dosage: 260 MG, 1X/DAY
     Route: 042
     Dates: start: 20180301, end: 20180301
  17. CARBOPLATIN. [Concomitant]
     Active Substance: CARBOPLATIN
     Dosage: 450 MG, 1X/DAY
     Route: 042
     Dates: end: 20180118
  18. PARACETAMOL [Concomitant]
     Active Substance: ACETAMINOPHEN
     Indication: ANALGESIC THERAPY
     Dosage: 250MG ONCE DAILY (1 SACHET)
     Route: 048
     Dates: start: 20171205, end: 20171230
  19. PARACETAMOL [Concomitant]
     Active Substance: ACETAMINOPHEN
     Dosage: 275 MG, AS NEEDED
     Route: 048
     Dates: start: 20180205
  20. PIPERACILLIN/TAZOBACTAM [Concomitant]
     Active Substance: PIPERACILLIN SODIUM\TAZOBACTAM SODIUM
     Indication: ANTIBIOTIC THERAPY
     Dosage: 6120 MG, 1X/DAY
     Route: 042
     Dates: start: 20171214, end: 20171216
  21. NESINA [Concomitant]
     Active Substance: ALOGLIPTIN BENZOATE
     Dosage: 1720 MG, 1X/DAY
     Route: 042
     Dates: start: 20171217, end: 20171219
  22. AMBISOME [Concomitant]
     Active Substance: AMPHOTERICIN B
     Dosage: 50 MG, 1X/DAY
     Route: 042
     Dates: start: 20171230
  23. PREDNISONE. [Concomitant]
     Active Substance: PREDNISONE
     Indication: STEROID THERAPY
     Dosage: 28 MG, 1X/DAY
     Route: 048
     Dates: start: 20171207, end: 20171212
  24. AMILORIDE [Concomitant]
     Active Substance: AMILORIDE
     Indication: MINERAL SUPPLEMENTATION
     Dosage: 3.4 MG, 1X/DAY
     Route: 048
     Dates: start: 20171230
  25. CYTARABINE. [Concomitant]
     Active Substance: CYTARABINE
     Dosage: 35 MG, 1X/DAY
     Route: 042
     Dates: start: 20180302, end: 20180306
  26. IMBRUVICA [Suspect]
     Active Substance: IBRUTINIB
     Dosage: 231 MG, 1X/DAY
     Route: 048
     Dates: start: 20171222
  27. FILGRASTIM [Concomitant]
     Active Substance: FILGRASTIM
     Dosage: 168 UG, 1X/DAY
     Route: 042
     Dates: start: 20171215, end: 20171215
  28. ETOPOSIDE. [Concomitant]
     Active Substance: ETOPOSIDE
     Dosage: 70 MG, 1X/DAY
     Route: 042
     Dates: start: 20171217, end: 20171219
  29. RITUXIMAB. [Concomitant]
     Active Substance: RITUXIMAB
     Dosage: 270 MG, 1X/DAY
     Route: 042
     Dates: start: 20171217, end: 20171217
  30. RITUXIMAB. [Concomitant]
     Active Substance: RITUXIMAB
     Dosage: 270 MG, 1X/DAY
     Route: 042
     Dates: start: 20180110, end: 20180110
  31. PARACETAMOL [Concomitant]
     Active Substance: ACETAMINOPHEN
     Indication: PAIN
     Dosage: 275MG UNIT DOSE AS NECESSARY
     Route: 048
     Dates: start: 20180205, end: 20180307
  32. AMBISOME [Concomitant]
     Active Substance: AMPHOTERICIN B
     Indication: ANTIFUNGAL PROPHYLAXIS
     Dosage: 45 MG, 1X/DAY
     Route: 042
     Dates: start: 20171212, end: 20171229
  33. DEXAMETHASONE. [Concomitant]
     Active Substance: DEXAMETHASONE
     Indication: NAUSEA
     Dosage: 14.4 MG, 1X/DAY
     Route: 048
     Dates: start: 20171219, end: 20171224
  34. RITUXIMAB. [Concomitant]
     Active Substance: RITUXIMAB
     Dosage: 270 MG, 1X/DAY
     Route: 042
     Dates: start: 20171215, end: 20171215
  35. PARACETAMOL [Concomitant]
     Active Substance: ACETAMINOPHEN
     Indication: PYREXIA
     Dosage: 250MG ONCE DAILY (1 SACHET)
     Route: 048
     Dates: start: 20171205, end: 20171230
  36. PIPERACILLIN/TAZOBACTAM [Concomitant]
     Active Substance: PIPERACILLIN SODIUM\TAZOBACTAM SODIUM
     Dosage: 6084 MG, 1X/DAY
     Route: 042
     Dates: start: 20180216, end: 20180223
  37. PIPERACILLIN/TAZOBACTAM [Concomitant]
     Active Substance: PIPERACILLIN SODIUM\TAZOBACTAM SODIUM
     Dosage: 6264 MG, 1X/DAY (1 SACHET)
     Route: 042
     Dates: start: 20171226, end: 20180101
  38. SANDO K /00031402/ [Concomitant]
     Dosage: 2 DF, 1X/DAY
     Route: 048
     Dates: start: 20180110, end: 20180130
  39. RANITIDINE. [Concomitant]
     Active Substance: RANITIDINE
     Indication: GASTROINTESTINAL DISORDER THERAPY
     Dosage: 75 MG, 1X/DAY (1 SACHET)
     Route: 048
     Dates: start: 20171207
  40. IMBRUVICA [Suspect]
     Active Substance: IBRUTINIB
     Indication: NON-HODGKIN^S LYMPHOMA RECURRENT
     Dosage: 231 MG, 1X/DAY
     Route: 048
     Dates: start: 20171222
  41. ETOPOSIDE. [Concomitant]
     Active Substance: ETOPOSIDE
     Dosage: 70 MG, 1X/DAY
     Route: 042
     Dates: start: 20180110, end: 20180112
  42. ETOPOSIDE. [Concomitant]
     Active Substance: ETOPOSIDE
     Dosage: UNK
     Route: 042
     Dates: start: 20171215
  43. CARBOPLATIN. [Concomitant]
     Active Substance: CARBOPLATIN
     Dosage: 450 MG, 1X/DAY
     Route: 042
     Dates: start: 20180110, end: 20180110
  44. CIPROFLOXACIN. [Concomitant]
     Active Substance: CIPROFLOXACIN
     Indication: ANTIBIOTIC THERAPY
     Dosage: 145 MG, 1X/DAY
     Route: 048
     Dates: start: 20171216, end: 20171221
  45. MICAFUNGIN [Concomitant]
     Active Substance: MICAFUNGIN
     Indication: ANTIFUNGAL PROPHYLAXIS
     Dosage: 33 MG, 1X/DAY
     Route: 017
     Dates: start: 20180119
  46. MICAFUNGIN [Concomitant]
     Active Substance: MICAFUNGIN
     Dosage: 35 MG, 1X/DAY
     Route: 042
     Dates: start: 20180221, end: 20180304
  47. ONDANSETRON [Concomitant]
     Active Substance: ONDANSETRON
     Indication: VOMITING
     Dosage: 10.8MG ONCE DAILY (1 SACHET)
     Route: 048
     Dates: start: 20171221
  48. CARBOPLATIN. [Concomitant]
     Active Substance: CARBOPLATIN
     Dosage: UNK
     Route: 042
     Dates: start: 20171215
  49. CARBOPLATIN. [Concomitant]
     Active Substance: CARBOPLATIN
     Dosage: 450 MG, 1X/DAY
     Route: 042
     Dates: start: 20171217, end: 20171217
  50. COTRIMOXAZOLE [Concomitant]
     Active Substance: SULFAMETHOXAZOLE\TRIMETHOPRIM
     Indication: PROPHYLAXIS
     Dosage: 480MG ONCE DAILY (1 SACHET)
     Route: 048
     Dates: start: 20171223, end: 20171225
  51. COTRIMOXAZOLE [Concomitant]
     Active Substance: SULFAMETHOXAZOLE\TRIMETHOPRIM
     Dosage: 480MG ONCE DAILY (1 SACHET)
     Route: 048
     Dates: start: 20180217, end: 20180223
  52. COTRIMOXAZOLE [Concomitant]
     Active Substance: SULFAMETHOXAZOLE\TRIMETHOPRIM
     Dosage: 480MG ONCE DAILY (1 SACHET)
     Route: 048
     Dates: start: 20180113
  53. CHLORPHENAMINE [Concomitant]
     Active Substance: CHLORPHENIRAMINE MALEATE
     Indication: PRURITUS
     Dosage: 2.5 MG, 1X/DAY
     Route: 042
     Dates: start: 20171215, end: 20171231
  54. CHLORPHENAMINE [Concomitant]
     Active Substance: CHLORPHENIRAMINE MALEATE
     Indication: ANTIALLERGIC THERAPY
     Dosage: 2.5 MG, 1X/DAY
     Route: 042
     Dates: start: 20171215, end: 20171231
  55. PARACETAMOL [Concomitant]
     Active Substance: ACETAMINOPHEN
     Dosage: 275 MG, AS NEEDED
     Route: 048
     Dates: start: 20180205, end: 20180307
  56. MOVICOL [Concomitant]
     Active Substance: POLYETHYLENE GLYCOL 3350\POTASSIUM CHLORIDE\SODIUM BICARBONATE\SODIUM CHLORIDE
     Dosage: 1 DF, 1X/DAY (SACHET)
     Route: 048
     Dates: start: 20171212, end: 20171212
  57. MAGNESIUM [Concomitant]
     Active Substance: MAGNESIUM
     Dosage: 24 MMOL, 1X/DAY
     Route: 048
     Dates: start: 20180220, end: 20180302
  58. OMNIPAQUE [Concomitant]
     Active Substance: IOHEXOL
     Dosage: 34ML UNIT DOSE (STAT)
     Route: 042
     Dates: start: 20171207, end: 20171207
  59. POTASSIUM [Concomitant]
     Active Substance: POTASSIUM
     Indication: MINERAL SUPPLEMENTATION
     Dosage: 4 DF, 1X/DAY
     Route: 048
     Dates: start: 20180303
  60. POTASSIUM [Concomitant]
     Active Substance: POTASSIUM
     Dosage: 2 DF, 1X/DAY
     Route: 048
     Dates: start: 20171220, end: 20171223
  61. AMILORIDE [Concomitant]
     Active Substance: AMILORIDE
     Dosage: 3.3 MG, 1X/DAY
     Route: 048
     Dates: start: 20180222, end: 20180307
  62. RASBURICASE [Concomitant]
     Active Substance: RASBURICASE
     Indication: TUMOUR LYSIS SYNDROME
     Dosage: 3.5 MG, 1X/DAY
     Route: 042
     Dates: start: 20171207, end: 20171207
  63. MICAFUNGIN [Concomitant]
     Active Substance: MICAFUNGIN
     Dosage: 336 MG, 1X/DAY
     Route: 042
     Dates: start: 20180119, end: 20180331
  64. DEXAMETHASONE. [Concomitant]
     Active Substance: DEXAMETHASONE
     Indication: VOMITING
     Dosage: 14.4 MG, 1X/DAY
     Route: 048
     Dates: start: 20171219, end: 20171224
  65. MORPHINE SULPHATE [Concomitant]
     Active Substance: MORPHINE SULFATE
     Indication: ANALGESIC THERAPY
     Dosage: 3.32 MG, 1X/DAY
     Route: 048
     Dates: start: 20180209, end: 20180209
  66. ONDANSETRON [Concomitant]
     Active Substance: ONDANSETRON
     Indication: ANTIEMETIC SUPPORTIVE CARE
     Dosage: 10.8MG ONCE DAILY (1 SACHET)
     Route: 042
     Dates: start: 20171221, end: 20171221
  67. ONDANSETRON [Concomitant]
     Active Substance: ONDANSETRON
     Dosage: 10.8MG ONCE DAILY (1 SACHET)
     Route: 042
     Dates: start: 20180207, end: 20180304
  68. IFOSFAMIDE. [Concomitant]
     Active Substance: IFOSFAMIDE
     Dosage: UNK
     Route: 042
     Dates: start: 20171215
  69. IFOSFAMIDE. [Concomitant]
     Active Substance: IFOSFAMIDE
     Dosage: 2100 MG, 1X/DAY
     Route: 042
     Dates: start: 20171217, end: 20171219
  70. ETOPOSIDE. [Concomitant]
     Active Substance: ETOPOSIDE
     Dosage: 70 MG, 1X/DAY
     Route: 042
     Dates: start: 20180302, end: 20180306
  71. MOVICOL [Concomitant]
     Active Substance: POLYETHYLENE GLYCOL 3350\POTASSIUM CHLORIDE\SODIUM BICARBONATE\SODIUM CHLORIDE
     Indication: CONSTIPATION
     Dosage: 6 DF, 1X/DAY (SACHET)
     Route: 048
     Dates: start: 20171231, end: 20180101
  72. MORPHINE SULPHATE [Concomitant]
     Active Substance: MORPHINE SULFATE
     Dosage: 3.32 MG, 1X/DAY
     Route: 048
     Dates: start: 20180208
  73. CEFIXIME. [Concomitant]
     Active Substance: CEFIXIME
     Dosage: 200 MG, UNK
     Route: 048
     Dates: start: 20180213, end: 20180329

REACTIONS (17)
  - Abdominal pain [Recovered/Resolved]
  - Alanine aminotransferase increased [Recovered/Resolved]
  - Gamma-glutamyltransferase increased [Unknown]
  - Nausea [Recovered/Resolved]
  - Oropharyngeal pain [Recovered/Resolved]
  - Rash maculo-papular [Recovered/Resolved]
  - Dry eye [Recovered/Resolved]
  - Back pain [Recovered/Resolved]
  - Lung consolidation [Recovered/Resolved]
  - Aspartate aminotransferase increased [Recovered/Resolved]
  - Pruritus [Recovered/Resolved]
  - Hypotension [Recovered/Resolved]
  - Febrile neutropenia [Recovered/Resolved]
  - Eye pain [Recovered/Resolved]
  - Vomiting [Recovered/Resolved]
  - Lung infection [Recovered/Resolved]
  - Constipation [Recovered/Resolved]

NARRATIVE: CASE EVENT DATE: 2017
